FAERS Safety Report 7944162-8 (Version None)
Quarter: 2011Q4

REPORT INFORMATION
  Report Type: 
  Country: None (occurrence: None)
  Receive Date: 20111129
  Receipt Date: 20111118
  Transmission Date: 20120403
  Serious: Yes (Other)
  Sender: FDA-Public Use
  Company Number: IE-BIOGENIDEC-2011BI000931

PATIENT
  Age: 68 Year
  Sex: Female

DRUGS (6)
  1. ZANAFLEX [Concomitant]
  2. CITALOPRAM HYDROBROMIDE [Concomitant]
  3. LYRICA [Concomitant]
  4. LIORESAI [Concomitant]
  5. TYSABRI [Suspect]
     Indication: PROGRESSIVE MULTIPLE SCLEROSIS
     Route: 042
     Dates: start: 20070704, end: 20100505
  6. CALCIUM CARBONATE [Concomitant]

REACTIONS (4)
  - HIP FRACTURE [None]
  - ORAL CAVITY CANCER METASTATIC [None]
  - CLAVICLE FRACTURE [None]
  - LICHEN PLANUS [None]
